FAERS Safety Report 8631477 (Version 3)
Quarter: 2012Q4

REPORT INFORMATION
  Report Type: 
  Country: US (occurrence: US)
  Receive Date: 20120622
  Receipt Date: 20120912
  Transmission Date: 20130627
  Serious: Yes (Hospitalization, Other)
  Sender: FDA-Public Use
  Company Number: US-ALLERGAN-1208418US

PATIENT
  Age: 63 Year
  Sex: Male
  Weight: 80 kg

DRUGS (10)
  1. BOTOX [Suspect]
     Indication: HEMIPLEGIA
     Dosage: 500 UNITS, single
     Route: 030
     Dates: start: 20120531, end: 20120531
  2. BOTOX [Suspect]
     Indication: ARM SPASTICITY
     Dosage: 200 UNITS, single
     Route: 030
     Dates: start: 20120531, end: 20120531
  3. BOTOX [Suspect]
     Indication: LEG SPASTICITY
     Dosage: 200 UNITS, single
     Route: 030
     Dates: start: 20120531, end: 20120531
  4. AMLODIPINE [Concomitant]
     Indication: DRUG USE FOR UNKNOWN INDICATION
     Route: 048
  5. LISINOPRIL [Concomitant]
     Indication: DRUG USE FOR UNKNOWN INDICATION
     Route: 048
  6. METOPROLOL [Concomitant]
     Indication: DRUG USE FOR UNKNOWN INDICATION
     Route: 048
  7. NORTRIPTYLINE [Concomitant]
     Indication: DRUG USE FOR UNKNOWN INDICATION
     Route: 048
  8. SERTRALINE [Concomitant]
     Indication: DRUG USE FOR UNKNOWN INDICATION
     Route: 048
  9. SPIRONOLACTONE [Concomitant]
     Indication: DRUG USE FOR UNKNOWN INDICATION
     Route: 048
  10. MULTIVITAMINS [Concomitant]
     Indication: DRUG USE FOR UNKNOWN INDICATION
     Route: 048

REACTIONS (12)
  - Botulism [Unknown]
  - Rhabdomyolysis [Unknown]
  - Liver function test abnormal [Unknown]
  - Blood creatine phosphokinase increased [Unknown]
  - Dysphagia [Not Recovered/Not Resolved]
  - Abdominal discomfort [Unknown]
  - Nausea [Unknown]
  - Diarrhoea [Unknown]
  - Muscular weakness [Unknown]
  - Diplopia [Unknown]
  - Vision blurred [Unknown]
  - Urinary tract infection [Unknown]
